FAERS Safety Report 7074645-7 (Version None)
Quarter: 2010Q4

REPORT INFORMATION
  Report Type: 
  Country: None (occurrence: None)
  Receive Date: 20101029
  Receipt Date: 20101025
  Transmission Date: 20110411
  Serious: Yes (Death)
  Sender: FDA-Public Use
  Company Number: A0889445A

PATIENT
  Sex: Male

DRUGS (10)
  1. AVANDARYL [Suspect]
     Indication: PRODUCT USED FOR UNKNOWN INDICATION
     Route: 048
     Dates: start: 20080101
  2. LANOXIN [Concomitant]
  3. MELOXICAM [Concomitant]
  4. ASPIRIN [Concomitant]
  5. LIPITOR [Concomitant]
  6. ZYLOPRIM [Concomitant]
  7. ALDACTONE [Concomitant]
  8. IMDUR [Concomitant]
  9. TAMSULOSIN [Concomitant]
  10. DORMICUM [Concomitant]

REACTIONS (1)
  - RENAL FAILURE CHRONIC [None]
